FAERS Safety Report 7805155-4 (Version None)
Quarter: 2011Q4

REPORT INFORMATION
  Report Type: 
  Country: None (occurrence: None)
  Receive Date: 20111010
  Receipt Date: 20110930
  Transmission Date: 20120403
  Serious: Yes (Other)
  Sender: FDA-Public Use
  Company Number: US-BAYER-2010-002544

PATIENT
  Age: 25 Year
  Sex: Female
  Weight: 124.72 kg

DRUGS (8)
  1. VITAMIN E [Concomitant]
  2. DEMEROL [Concomitant]
  3. PHENERGAN HCL [Concomitant]
  4. YASMIN [Suspect]
     Indication: MENORRHAGIA
  5. LORTAB [Concomitant]
     Dosage: 7.5 MG, PRN
  6. YAZ [Suspect]
     Indication: MENORRHAGIA
  7. NEXIUM [Concomitant]
  8. LORAZEPAM [Concomitant]
     Dosage: 0.5 MG, UNK

REACTIONS (4)
  - GALLBLADDER INJURY [None]
  - BILIARY DYSKINESIA [None]
  - CHOLECYSTITIS ACUTE [None]
  - GASTROINTESTINAL DISORDER [None]
